FAERS Safety Report 8197677-4 (Version None)
Quarter: 2012Q1

REPORT INFORMATION
  Report Type: 
  Country: None (occurrence: None)
  Receive Date: 20120309
  Receipt Date: 20120305
  Transmission Date: 20120608
  Serious: Yes (Death, Other)
  Sender: FDA-Public Use
  Company Number: GR-PFIZER INC-2012058268

PATIENT
  Age: 23 Year
  Sex: Male

DRUGS (4)
  1. COLIMYCIN [Suspect]
     Indication: SEPSIS
  2. TIGECYCLINE [Suspect]
     Indication: SEPSIS
  3. TIGECYCLINE [Suspect]
     Indication: ENDOCARDITIS
  4. COLIMYCIN [Suspect]
     Indication: ENDOCARDITIS

REACTIONS (2)
  - DRUG INEFFECTIVE [None]
  - SEPSIS [None]
